FAERS Safety Report 18843624 (Version 1)
Quarter: 2021Q1

REPORT INFORMATION
  Report Type: Report from Study
  Country: US (occurrence: US)
  Receive Date: 20210203
  Receipt Date: 20210203
  Transmission Date: 20210419
  Serious: No
  Sender: FDA-Public Use
  Company Number: US-EXELIXIS-CABO-20027901

PATIENT
  Sex: Male

DRUGS (1)
  1. CABOMETYX [Suspect]
     Active Substance: CABOZANTINIB S-MALATE
     Indication: RENAL CELL CARCINOMA
     Dosage: 60 MG, QD, (PM W/O FOOD)
     Route: 048
     Dates: start: 20200217

REACTIONS (13)
  - Diarrhoea [Unknown]
  - Taste disorder [Unknown]
  - Blood pressure systolic increased [Recovering/Resolving]
  - Decreased appetite [Unknown]
  - Blood creatinine increased [Recovering/Resolving]
  - Diplopia [Unknown]
  - Bowel movement irregularity [Unknown]
  - Fatigue [Not Recovered/Not Resolved]
  - Dysphonia [Unknown]
  - Unevaluable investigation [Unknown]
  - Vision blurred [Unknown]
  - Proteinuria [Recovering/Resolving]
  - Asthenia [Not Recovered/Not Resolved]
